FAERS Safety Report 19213355 (Version 1)
Quarter: 2021Q2

REPORT INFORMATION
  Report Type: Spontaneous
  Country: GB (occurrence: GB)
  Receive Date: 20210504
  Receipt Date: 20210504
  Transmission Date: 20210717
  Serious: Yes (Death, Other)
  Sender: FDA-Public Use
  Company Number: GB-BAYER-2021-133161

PATIENT

DRUGS (1)
  1. REGORAFENIB. [Suspect]
     Active Substance: REGORAFENIB
     Indication: CHOLANGIOCARCINOMA
     Dosage: UNK

REACTIONS (4)
  - Cholangiocarcinoma [None]
  - Off label use [None]
  - Death [Fatal]
  - Product use in unapproved indication [None]

NARRATIVE: CASE EVENT DATE: 202101
